FAERS Safety Report 9715824 (Version 5)
Quarter: 2014Q1

REPORT INFORMATION
  Report Type: Report from Study
  Country: CA (occurrence: CA)
  Receive Date: 20131127
  Receipt Date: 20140114
  Transmission Date: 20141002
  Serious: Yes (Death, Hospitalization, Other)
  Sender: FDA-Public Use
  Company Number: CA-ROCHE-1306828

PATIENT
  Age: 40 Year
  Sex: Female

DRUGS (9)
  1. AVASTIN [Suspect]
     Indication: BRAIN NEOPLASM MALIGNANT
     Route: 042
     Dates: start: 20131114, end: 20131227
  2. AVASTIN [Suspect]
     Indication: GLIOBLASTOMA
  3. DECADRON [Suspect]
     Indication: PRODUCT USED FOR UNKNOWN INDICATION
     Route: 065
  4. SOLU-MEDROL [Concomitant]
     Route: 042
     Dates: start: 20131114
  5. REACTINE (CANADA) [Concomitant]
     Route: 048
     Dates: start: 20131114
  6. CLONAZEPAM [Concomitant]
     Route: 065
  7. CLONAZEPAM [Concomitant]
     Route: 065
  8. TYLENOL [Concomitant]
  9. TYLENOL [Concomitant]
     Route: 048
     Dates: start: 20131114

REACTIONS (14)
  - Pneumonia [Unknown]
  - Pain [Unknown]
  - Diabetes mellitus [Not Recovered/Not Resolved]
  - Amnesia [Unknown]
  - General physical health deterioration [Not Recovered/Not Resolved]
  - Cardiovascular disorder [Unknown]
  - Death [Fatal]
  - Headache [Unknown]
  - Haemoglobin decreased [Unknown]
  - Platelet count decreased [Unknown]
  - Neutrophil count decreased [Unknown]
  - Anxiety [Unknown]
  - Muscular weakness [Unknown]
  - Glossodynia [Unknown]
